FAERS Safety Report 16120110 (Version 4)
Quarter: 2019Q2

REPORT INFORMATION
  Report Type: Spontaneous
  Country: PT (occurrence: PT)
  Receive Date: 20190326
  Receipt Date: 20190524
  Transmission Date: 20190711
  Serious: Yes (Hospitalization, Other)
  Sender: FDA-Public Use
  Company Number: PHHY2019PT065106

PATIENT

DRUGS (7)
  1. LINEZOLID. [Suspect]
     Active Substance: LINEZOLID
     Indication: RESPIRATORY TRACT INFECTION
     Dosage: UNK (SEVERAL CYCLE)
     Route: 065
  2. AMOXICILLIN SODIUM+POTASSIUM CLAVULANATE [Suspect]
     Active Substance: AMOXICILLIN\CLAVULANATE POTASSIUM
     Indication: RESPIRATORY TRACT INFECTION
     Dosage: UNK (SEVERAL CYCLE)
     Route: 065
  3. PIPERACILLIN AND TAZOBACTAM [Suspect]
     Active Substance: PIPERACILLIN SODIUM\TAZOBACTAM SODIUM
     Indication: RESPIRATORY TRACT INFECTION
     Dosage: UNK (SEVERAL CYCLES)
     Route: 065
  4. ENOXAPARIN [Concomitant]
     Active Substance: ENOXAPARIN
     Indication: ATRIAL FIBRILLATION
     Dosage: 80 MG, 40 MG BID (EVERY 12 HOURS)
     Route: 065
  5. MEROPENEM. [Suspect]
     Active Substance: MEROPENEM
     Indication: RESPIRATORY TRACT INFECTION
     Dosage: UNK (SEVERAL CYCLES)
     Route: 065
  6. TISSUE PLASMINOGEN ACTIVATOR, RECOMBINATIVE [Concomitant]
     Active Substance: ALTEPLASE
     Indication: PRODUCT USED FOR UNKNOWN INDICATION
     Route: 065
  7. ENOXAPARIN [Concomitant]
     Active Substance: ENOXAPARIN
     Indication: ATHEROSCLEROSIS PROPHYLAXIS
     Dosage: 40 MG, QD
     Route: 065

REACTIONS (12)
  - Pleural effusion [Unknown]
  - Proteinuria [Unknown]
  - Leukocyturia [Unknown]
  - Renal tubular necrosis [Not Recovered/Not Resolved]
  - Renal impairment [Not Recovered/Not Resolved]
  - Atrial fibrillation [Unknown]
  - Renal injury [Not Recovered/Not Resolved]
  - Eosinophilia [Unknown]
  - Renal embolism [Unknown]
  - Hemiparesis [Unknown]
  - Haematuria [Unknown]
  - Renal failure [Unknown]
